FAERS Safety Report 9625500 (Version 1)
Quarter: 2013Q4

REPORT INFORMATION
  Report Type: Spontaneous
  Country: US (occurrence: None)
  Receive Date: 20131015
  Receipt Date: 20131015
  Transmission Date: 20140711
  Serious: Yes (Hospitalization)
  Sender: FDA-Public Use
  Company Number: None

PATIENT
  Age: 50 Year
  Sex: Female
  Weight: 69 kg

DRUGS (2)
  1. OMEPRAZOLE [Suspect]
     Indication: GASTRITIS
     Dosage: SEVERAL WEEKS
     Route: 048
  2. OMEPRAZOLE [Suspect]
     Indication: ULCER
     Dosage: SEVERAL WEEKS
     Route: 048

REACTIONS (1)
  - Renal failure acute [None]
